FAERS Safety Report 11224239 (Version 1)
Quarter: 2015Q2

REPORT INFORMATION
  Report Type: Spontaneous
  Country: US (occurrence: None)
  Receive Date: 20150626
  Receipt Date: 20150626
  Transmission Date: 20150821
  Serious: Yes (Hospitalization)
  Sender: FDA-Public Use
  Company Number: None

PATIENT
  Age: 56 Year
  Sex: Male
  Weight: 66.5 kg

DRUGS (2)
  1. ERBITUX [Suspect]
     Active Substance: CETUXIMAB
     Dates: end: 20150331
  2. TAXOTERE [Suspect]
     Active Substance: DOCETAXEL
     Dates: end: 20150511

REACTIONS (3)
  - Metabolic disorder [None]
  - Myoclonus [None]
  - Stress [None]

NARRATIVE: CASE EVENT DATE: 20150519
